FAERS Safety Report 23965404 (Version 1)
Quarter: 2024Q2

REPORT INFORMATION
  Report Type: Report from Study
  Country: US (occurrence: US)
  Receive Date: 20240612
  Receipt Date: 20240612
  Transmission Date: 20240716
  Serious: Yes (Hospitalization)
  Sender: FDA-Public Use
  Company Number: US-JNJFOC-20240616636

PATIENT
  Age: 2 Decade
  Sex: Female

DRUGS (2)
  1. SPRAVATO [Suspect]
     Active Substance: ESKETAMINE
     Indication: Depression
     Dosage: ^^56 MG, 1 TOTAL DOSE^^
     Dates: start: 20230808, end: 20230808
  2. SPRAVATO [Suspect]
     Active Substance: ESKETAMINE
     Dosage: ^^84 MG, 18 TOTAL DOSES^^
     Dates: start: 20230810, end: 20240325

REACTIONS (1)
  - Hospitalisation [Unknown]
